FAERS Safety Report 6525650-8 (Version None)
Quarter: 2010Q1

REPORT INFORMATION
  Report Type: 
  Country: None (occurrence: None)
  Receive Date: 20100104
  Receipt Date: 20091221
  Transmission Date: 20100710
  Serious: Yes (Hospitalization)
  Sender: FDA-Public Use
  Company Number: DE-ELI_LILLY_AND_COMPANY-DE200912004784

PATIENT
  Age: 57 Year
  Sex: Female

DRUGS (17)
  1. CYMBALTA [Suspect]
     Indication: DEPRESSION
     Dosage: 90 MG, UNKNOWN
     Route: 048
  2. CYMBALTA [Suspect]
     Dosage: 120 MG, UNKNOWN
     Route: 048
     Dates: start: 20090428
  3. VALPROATE SODIUM [Concomitant]
     Dosage: 2500 MG, UNKNOWN
     Route: 048
     Dates: end: 20090429
  4. VALPROATE SODIUM [Concomitant]
     Dosage: 2000 MG, UNKNOWN
     Route: 048
     Dates: start: 20090430, end: 20090506
  5. VALPROATE SODIUM [Concomitant]
     Dosage: 1500 MG, UNKNOWN
     Route: 048
     Dates: start: 20090507, end: 20090508
  6. VALPROATE SODIUM [Concomitant]
     Dosage: 1000 MG, UNKNOWN
     Route: 048
     Dates: start: 20090509, end: 20090511
  7. VALPROATE SODIUM [Concomitant]
     Dosage: 500 MG, UNKNOWN
     Route: 048
     Dates: start: 20090512, end: 20090513
  8. MIRTAZAPINE [Concomitant]
     Dosage: 30 MG, UNKNOWN
     Route: 048
  9. LAMOTRIGINE [Concomitant]
     Dosage: 150 MG, UNKNOWN
     Route: 048
     Dates: end: 20090429
  10. LAMOTRIGINE [Concomitant]
     Dosage: 200 MG, UNKNOWN
     Route: 048
     Dates: start: 20090430
  11. ABILIFY [Concomitant]
     Dosage: 5 MG, UNKNOWN
     Route: 048
     Dates: start: 20090430, end: 20090503
  12. ABILIFY [Concomitant]
     Dosage: 10 MG, UNKNOWN
     Route: 048
     Dates: start: 20090504
  13. TAVOR [Concomitant]
     Dosage: 1.5 MG, UNKNOWN
     Route: 048
     Dates: start: 20090429, end: 20090505
  14. TAVOR [Concomitant]
     Dosage: 1 MG, UNKNOWN
     Route: 048
     Dates: start: 20090506, end: 20090507
  15. MELPERON [Concomitant]
     Dosage: 50 MG, UNKNOWN
     Route: 048
     Dates: start: 20090430, end: 20090505
  16. MELPERON [Concomitant]
     Dosage: 25 MG, UNKNOWN
     Route: 048
     Dates: start: 20090506, end: 20090507
  17. JODID [Concomitant]
     Dosage: 0.2 MG, UNKNOWN
     Route: 048

REACTIONS (2)
  - DRUG INTERACTION [None]
  - ENCEPHALOPATHY [None]
